FAERS Safety Report 24016231 (Version 1)
Quarter: 2024Q2

REPORT INFORMATION
  Report Type: Spontaneous
  Country: US (occurrence: US)
  Receive Date: 20240626
  Receipt Date: 20240626
  Transmission Date: 20240717
  Serious: No
  Sender: FDA-Public Use
  Company Number: US-SA-SAC20240620000406

PATIENT
  Age: 17 Year
  Sex: Female

DRUGS (1)
  1. DUPIXENT [Suspect]
     Active Substance: DUPILUMAB
     Indication: Dermatitis atopic
     Dosage: DOSE OR AMOUNT: 300MG FREQUENCY: EVERY OTHER WEEK
     Route: 058

REACTIONS (3)
  - Headache [Recovering/Resolving]
  - Fatigue [Recovering/Resolving]
  - Injection site pain [Recovering/Resolving]
